FAERS Safety Report 5361225-4 (Version None)
Quarter: 2007Q2

REPORT INFORMATION
  Report Type: 
  Country: None (occurrence: None)
  Receive Date: 20070614
  Receipt Date: 20070529
  Transmission Date: 20071010
  Serious: Yes (Hospitalization)
  Sender: FDA-Public Use
  Company Number: DSA_30056_2007

PATIENT
  Age: 81 Year
  Sex: Female

DRUGS (7)
  1. DILTIAZEM HYDROCHLORIDE [Suspect]
     Dosage: (200 MG QD ORAL)
     Route: 048
     Dates: end: 20070406
  2. DILTIAZEM HYDROCHLORIDE [Suspect]
     Dosage: (100 MG QD ORAL)
     Route: 048
     Dates: start: 20070410
  3. RIVOTRIL [Concomitant]
  4. STABLON [Concomitant]
  5. ISOCARD [Concomitant]
  6. PREVISCAN [Concomitant]
  7. LEVOTHYROXINE SODIUM [Concomitant]

REACTIONS (4)
  - ASTHENIA [None]
  - HYPOTENSION [None]
  - MALAISE [None]
  - URINARY INCONTINENCE [None]
